FAERS Safety Report 19947631 (Version 1)
Quarter: 2021Q4

REPORT INFORMATION
  Report Type: Spontaneous
  Country: US (occurrence: US)
  Receive Date: 20211013
  Receipt Date: 20211013
  Transmission Date: 20220303
  Serious: No
  Sender: FDA-Public Use
  Company Number: US-HIKMA PHARMACEUTICALS USA INC.-US-H14001-21-01609

PATIENT
  Sex: Female

DRUGS (1)
  1. INFUMORPH [Suspect]
     Active Substance: MORPHINE SULFATE
     Indication: Spinal pain
     Dosage: DOSE OF 1 MG/ML VIA AN IMPLANTED INFUSION PUMP
     Route: 039
     Dates: start: 20210304

REACTIONS (4)
  - Disorientation [Unknown]
  - Confusional state [Unknown]
  - Fatigue [Unknown]
  - Somnolence [Unknown]
